FAERS Safety Report 10191049 (Version 1)
Quarter: 2014Q2

REPORT INFORMATION
  Report Type: Spontaneous
  Country: GB (occurrence: GB)
  Receive Date: 20140523
  Receipt Date: 20140523
  Transmission Date: 20141212
  Serious: Yes (Other)
  Sender: FDA-Public Use
  Company Number: GB-RANBAXY-2014RR-81521

PATIENT
  Sex: Female

DRUGS (2)
  1. CLARITHROMYCIN [Suspect]
     Indication: SKIN INFECTION
     Dosage: 250 MG, BID
     Route: 048
     Dates: start: 20140402, end: 20140409
  2. ZOLMITRIPTAN [Concomitant]
     Indication: MIGRAINE
     Dosage: 2.5 MG
     Route: 048
     Dates: start: 20131203

REACTIONS (1)
  - Photosensitivity reaction [Not Recovered/Not Resolved]
